FAERS Safety Report 4506906-7 (Version None)
Quarter: 2004Q4

REPORT INFORMATION
  Report Type: 
  Country: None (occurrence: None)
  Receive Date: 20041117
  Receipt Date: 20041104
  Transmission Date: 20050328
  Serious: Yes (Hospitalization, Disabling)
  Sender: FDA-Public Use
  Company Number: 2004062989

PATIENT
  Age: 53 Year
  Sex: Female

DRUGS (11)
  1. ZOLOFT [Suspect]
     Indication: DEPRESSION
     Dosage: 50 MG, ORAL
     Route: 048
     Dates: start: 20020101
  2. DILTIAZEM HYDROCHLORIDE [Suspect]
     Indication: HYPERTENSION
     Dosage: 180 MG, ORAL
     Route: 048
  3. LORAZEPAM [Suspect]
     Indication: ANXIETY
     Dosage: (1 MG, AS NECESSARY), ORAL
     Route: 048
  4. VENLAFAXINE HCL [Suspect]
     Indication: DEPRESSION
     Dosage: 150 MG
  5. ASPIRIN [Concomitant]
  6. OMEPRAZOLE [Concomitant]
  7. CELECOXIB (CELECOXIB) [Concomitant]
  8. MEFENAMIC ACID [Concomitant]
  9. GINSENG (GINSENG) [Concomitant]
  10. ATORVASTATIN CALCIUM [Concomitant]
  11. ACETAMINOPHEN [Concomitant]

REACTIONS (13)
  - DRUG INTERACTION [None]
  - FACIAL PALSY [None]
  - FACIAL PARESIS [None]
  - GAIT DISTURBANCE [None]
  - HEADACHE [None]
  - HYPERHIDROSIS [None]
  - HYPOAESTHESIA [None]
  - MYOCLONUS [None]
  - NECK PAIN [None]
  - NERVOUSNESS [None]
  - PARAESTHESIA [None]
  - PHOTOPHOBIA [None]
  - SEROTONIN SYNDROME [None]
